FAERS Safety Report 6917170-3 (Version None)
Quarter: 2010Q3

REPORT INFORMATION
  Report Type: 
  Country: None (occurrence: None)
  Receive Date: 20100804
  Receipt Date: 20100727
  Transmission Date: 20110219
  Serious: Yes (Hospitalization, Disabling, Other)
  Sender: FDA-Public Use
  Company Number: 016223

PATIENT
  Age: 40 Year
  Sex: Male

DRUGS (4)
  1. VIMPAT [Suspect]
     Indication: EPILEPSY
     Dosage: (400 MG ORAL), (REDUCED DOSE ORAL)
     Route: 048
     Dates: start: 20100201, end: 20100101
  2. VIMPAT [Suspect]
     Indication: EPILEPSY
     Dosage: (400 MG ORAL), (REDUCED DOSE ORAL)
     Route: 048
     Dates: start: 20100101
  3. KEPPRA [Concomitant]
  4. VALPROATE SODIUM [Concomitant]

REACTIONS (4)
  - CONDITION AGGRAVATED [None]
  - DROP ATTACKS [None]
  - MULTIPLE INJURIES [None]
  - PETIT MAL EPILEPSY [None]
